FAERS Safety Report 6326349-3 (Version None)
Quarter: 2009Q3

REPORT INFORMATION
  Report Type: 
  Country: None (occurrence: None)
  Receive Date: 20090821
  Receipt Date: 20090807
  Transmission Date: 20100115
  Serious: Yes (Other)
  Sender: FDA-Public Use
  Company Number: A-US2009-26521

PATIENT
  Age: 77 Year
  Sex: Female

DRUGS (1)
  1. TRACLEER [Suspect]
     Indication: PULMONARY ARTERIAL HYPERTENSION
     Dosage: ORAL
     Route: 048
     Dates: start: 20080728, end: 20090721

REACTIONS (3)
  - DYSPEPSIA [None]
  - HEPATIC CIRRHOSIS [None]
  - LOCALISED INTRAABDOMINAL FLUID COLLECTION [None]
